FAERS Safety Report 10089973 (Version 1)
Quarter: 2014Q2

REPORT INFORMATION
  Report Type: Spontaneous
  Country: PR (occurrence: PR)
  Receive Date: 20140421
  Receipt Date: 20140421
  Transmission Date: 20141212
  Serious: No
  Sender: FDA-Public Use
  Company Number: PR-ABBVIE-14P-131-1200648-00

PATIENT
  Age: 10 Year
  Sex: Female
  Weight: 33.14 kg

DRUGS (1)
  1. LUPRON DEPOT-PED (3 MONTH) [Suspect]
     Indication: PRECOCIOUS PUBERTY
     Dates: start: 201201

REACTIONS (4)
  - Underdose [Not Recovered/Not Resolved]
  - Injection site discolouration [Recovered/Resolved]
  - Injection site induration [Recovered/Resolved]
  - Injection site pain [Recovered/Resolved]
